FAERS Safety Report 5823704-2 (Version None)
Quarter: 2008Q3

REPORT INFORMATION
  Report Type: 
  Country: None (occurrence: None)
  Receive Date: 20080725
  Receipt Date: 20080715
  Transmission Date: 20090109
  Serious: Yes (Hospitalization)
  Sender: FDA-Public Use
  Company Number: BR-ABBOTT-08P-020-0459808-00

PATIENT
  Sex: Female
  Weight: 59 kg

DRUGS (2)
  1. HUMIRA [Suspect]
     Indication: RHEUMATOID ARTHRITIS
     Route: 058
     Dates: start: 20051001
  2. UNKNOWN MEDICATIONS [Concomitant]
     Indication: RHEUMATOID ARTHRITIS
     Dates: end: 20071118

REACTIONS (11)
  - ABDOMINAL PAIN UPPER [None]
  - ANAEMIA [None]
  - ANAPHYLACTIC SHOCK [None]
  - BONE EROSION [None]
  - CARDIAC DISORDER [None]
  - GAIT DISTURBANCE [None]
  - LIVER DISORDER [None]
  - NAUSEA [None]
  - RENAL FAILURE [None]
  - TUBERCULOSIS [None]
  - VISUAL IMPAIRMENT [None]
